FAERS Safety Report 25912188 (Version 2)
Quarter: 2025Q4

REPORT INFORMATION
  Report Type: Spontaneous
  Country: EU (occurrence: EU)
  Receive Date: 20251013
  Receipt Date: 20251105
  Transmission Date: 20260118
  Serious: Yes (Hospitalization, Other)
  Sender: PIRAMAL
  Company Number: EU-PIRAMAL PHARMA LIMITED-2025-PPL-000574

PATIENT

DRUGS (3)
  1. SEVOFLURANE [Suspect]
     Active Substance: SEVOFLURANE
     Indication: Sedation
     Dosage: 0.89 VOLUME PERCENT
  2. DEXKETOPROFEN [Suspect]
     Active Substance: DEXKETOPROFEN
     Indication: Product used for unknown indication
  3. AVIBACTAM SODIUM\CEFTAZIDIME [Concomitant]
     Active Substance: AVIBACTAM SODIUM\CEFTAZIDIME
     Indication: Product used for unknown indication
     Dosage: UNK

REACTIONS (5)
  - Hyperosmolar state [Recovered/Resolved]
  - Hypernatraemia [Recovered/Resolved]
  - Disease progression [Recovered/Resolved]
  - Renal impairment [Recovered/Resolved]
  - Product use in unapproved indication [Unknown]
